FAERS Safety Report 16690149 (Version 1)
Quarter: 2019Q3

REPORT INFORMATION
  Report Type: Spontaneous
  Country: HR (occurrence: HR)
  Receive Date: 20190809
  Receipt Date: 20190809
  Transmission Date: 20191004
  Serious: Yes (Other)
  Sender: FDA-Public Use
  Company Number: HR-PROVELL PHARMACEUTICALS-2072991

PATIENT
  Age: 15 Year
  Sex: Female
  Weight: 40 kg

DRUGS (7)
  1. PLIBEX (VITAMINS) [Suspect]
     Active Substance: VITAMINS
     Route: 048
     Dates: start: 20190403, end: 20190403
  2. DEXAMETHASONE. [Suspect]
     Active Substance: DEXAMETHASONE
     Route: 048
     Dates: start: 20190403, end: 20190403
  3. IBUPROFEN. [Suspect]
     Active Substance: IBUPROFEN
     Route: 048
     Dates: start: 20190403, end: 20190403
  4. EUTHYROX [Suspect]
     Active Substance: LEVOTHYROXINE SODIUM
     Indication: PRODUCT USED FOR UNKNOWN INDICATION
     Route: 048
     Dates: start: 20190403, end: 20190403
  5. LUPOCET [Suspect]
     Active Substance: ACETAMINOPHEN
     Route: 048
     Dates: start: 20190403, end: 20190403
  6. ACICLOVIR [Suspect]
     Active Substance: ACYCLOVIR
     Route: 048
     Dates: start: 20190403, end: 20190403
  7. NORMABEL [Suspect]
     Active Substance: DIAZEPAM
     Route: 048
     Dates: start: 20190403, end: 20190403

REACTIONS (2)
  - Intentional overdose [Unknown]
  - Suicide attempt [Unknown]

NARRATIVE: CASE EVENT DATE: 20190403
